FAERS Safety Report 6523003-X (Version None)
Quarter: 2009Q4

REPORT INFORMATION
  Report Type: 
  Country: None (occurrence: None)
  Receive Date: 20091222
  Receipt Date: 20091207
  Transmission Date: 20100525
  Serious: Yes (Hospitalization, Other)
  Sender: FDA-Public Use
  Company Number: AUR-APL-2009-01546

PATIENT
  Age: 4 Year
  Sex: Female

DRUGS (4)
  1. ZIDOVUDINE [Suspect]
     Indication: PROPHYLAXIS AGAINST HIV INFECTION
  2. LAMIVUDINE [Suspect]
     Indication: PROPHYLAXIS AGAINST HIV INFECTION
  3. NELFINAVIR MESYLATE [Suspect]
     Indication: PROPHYLAXIS AGAINST HIV INFECTION
     Dosage: TRANSPLACENTAL
     Route: 064
  4. NEVIRAPINE [Suspect]
     Indication: PROPHYLAXIS AGAINST HIV INFECTION

REACTIONS (14)
  - ABASIA [None]
  - BLOOD LACTIC ACID INCREASED [None]
  - CATARACT [None]
  - DEVELOPMENTAL DELAY [None]
  - GROWTH RETARDATION [None]
  - HYPERPARATHYROIDISM [None]
  - HYPOTONIA [None]
  - MATERNAL DRUGS AFFECTING FOETUS [None]
  - MENTAL RETARDATION [None]
  - MITOCHONDRIAL DNA MUTATION [None]
  - MITOCHONDRIAL TOXICITY [None]
  - PANCREATITIS [None]
  - SMALL FOR DATES BABY [None]
  - SPEECH DISORDER [None]
